FAERS Safety Report 6385654-5 (Version None)
Quarter: 2009Q4

REPORT INFORMATION
  Report Type: 
  Country: None (occurrence: None)
  Receive Date: 20091002
  Receipt Date: 20081013
  Transmission Date: 20100525
  Serious: No
  Sender: FDA-Public Use
  Company Number: US-ASTRAZENECA-2008UW22447

PATIENT
  Age: 69 Year
  Sex: Female
  Weight: 62.1 kg

DRUGS (3)
  1. ARIMIDEX [Suspect]
     Indication: BREAST CANCER
     Route: 048
     Dates: start: 20051101
  2. FOSAMAX [Concomitant]
  3. BLOOD PRESSURE MEDICATIONS [Concomitant]

REACTIONS (4)
  - ARTHRALGIA [None]
  - OSTEOPOROSIS [None]
  - PAIN IN JAW [None]
  - TOOTHACHE [None]
